FAERS Safety Report 9001651 (Version 1)
Quarter: 2013Q1

REPORT INFORMATION
  Report Type: Spontaneous
  Country: GB (occurrence: GB)
  Receive Date: 20130107
  Receipt Date: 20130107
  Transmission Date: 20140127
  Serious: Yes (Life-Threatening, Other)
  Sender: FDA-Public Use
  Company Number: GB-009507513-1301GBR001986

PATIENT
  Age: 80 Year
  Sex: Female

DRUGS (7)
  1. LOSARTAN POTASSIUM [Suspect]
     Indication: HYPERTENSION
     Dosage: 50 MG, QD
     Route: 048
     Dates: start: 20121210, end: 20121217
  2. ACCOLATE [Concomitant]
  3. ADCAL-D3 [Concomitant]
  4. CANDESARTAN [Concomitant]
     Dosage: UNK
  5. ACETAMINOPHEN (+) CODEINE PHOSPHATE [Concomitant]
  6. DOXAZOSIN MESYLATE [Concomitant]
  7. FUROSEMIDE [Concomitant]

REACTIONS (4)
  - Thrombocytopenia [Recovered/Resolved]
  - Dizziness [Recovered/Resolved]
  - Malaise [Recovered/Resolved]
  - Epistaxis [Recovered/Resolved]
